FAERS Safety Report 6831525-7 (Version None)
Quarter: 2010Q3

REPORT INFORMATION
  Report Type: 
  Country: None (occurrence: None)
  Receive Date: 20100712
  Receipt Date: 20100628
  Transmission Date: 20110219
  Serious: Yes (Hospitalization)
  Sender: FDA-Public Use
  Company Number: PHEH2009US13287

PATIENT
  Sex: Female
  Weight: 43.537 kg

DRUGS (7)
  1. GLEEVEC [Suspect]
     Indication: SYSTEMIC MASTOCYTOSIS
     Dosage: 400 MG/DAY
     Route: 048
     Dates: start: 20090930, end: 20091001
  2. GLEEVEC [Suspect]
     Dosage: 400 MG, QD
     Route: 048
     Dates: start: 20091002, end: 20091004
  3. GLEEVEC [Suspect]
     Dosage: 200 MG, QD
     Route: 048
     Dates: start: 20091008
  4. GLEEVEC [Suspect]
     Dosage: 400 MG/DAY
     Dates: start: 20100109
  5. ALDACTONE [Concomitant]
     Indication: ASCITES
     Dosage: 75 MG, BID
     Dates: start: 20090626
  6. OMEPRAZOLE [Concomitant]
     Indication: GASTROOESOPHAGEAL REFLUX DISEASE
     Dosage: 20 MG, QD
     Route: 048
     Dates: start: 20090501
  7. GASTROCROM [Concomitant]
     Indication: SYSTEMIC MASTOCYTOSIS
     Dosage: 200 MG, Q6H
     Dates: start: 20090624

REACTIONS (11)
  - BODY TEMPERATURE INCREASED [None]
  - CHRONIC OBSTRUCTIVE PULMONARY DISEASE [None]
  - COUGH [None]
  - DIARRHOEA [None]
  - DYSPNOEA [None]
  - INFLUENZA LIKE ILLNESS [None]
  - NAUSEA [None]
  - OEDEMA PERIPHERAL [None]
  - PULMONARY CONGESTION [None]
  - VOMITING [None]
  - WAIST CIRCUMFERENCE INCREASED [None]
